FAERS Safety Report 7785301-1 (Version None)
Quarter: 2011Q3

REPORT INFORMATION
  Report Type: 
  Country: None (occurrence: None)
  Receive Date: 20110929
  Receipt Date: 20110927
  Transmission Date: 20111222
  Serious: No
  Sender: FDA-Public Use
  Company Number: US-PFIZER INC-2011231020

PATIENT
  Sex: Male

DRUGS (3)
  1. LYRICA [Suspect]
     Dosage: 50 MG, UNK
     Route: 048
     Dates: start: 20110101
  2. LYRICA [Suspect]
     Dosage: 150 MG, UNK
     Route: 048
     Dates: start: 20110101, end: 20110101
  3. LYRICA [Suspect]
     Dosage: 100 MG, UNK
     Route: 048
     Dates: start: 20110101, end: 20110101

REACTIONS (1)
  - VISUAL IMPAIRMENT [None]
